FAERS Safety Report 8500382-5 (Version None)
Quarter: 2012Q3

REPORT INFORMATION
  Report Type: 
  Country: None (occurrence: None)
  Receive Date: 20120705
  Receipt Date: 20120705
  Transmission Date: 20120928
  Serious: Yes (Disabling)
  Sender: FDA-Public Use
  Company Number: None

PATIENT
  Age: 1 Year
  Weight: 78.9259 kg

DRUGS (1)
  1. ABILIFY [Suspect]

REACTIONS (9)
  - GASTRIC DISORDER [None]
  - MUSCLE TWITCHING [None]
  - HYPOAESTHESIA [None]
  - SOMNOLENCE [None]
  - GAIT DISTURBANCE [None]
  - GAIT SPASTIC [None]
  - VISION BLURRED [None]
  - RESTLESS LEGS SYNDROME [None]
  - VISUAL IMPAIRMENT [None]
